FAERS Safety Report 13564096 (Version 2)
Quarter: 2017Q3

REPORT INFORMATION
  Report Type: Spontaneous
  Country: US (occurrence: US)
  Receive Date: 20170519
  Receipt Date: 20170721
  Transmission Date: 20171127
  Serious: No
  Sender: FDA-Public Use
  Company Number: US-GLAXOSMITHKLINE-US2017070997

PATIENT
  Age: 52 Year
  Sex: Male

DRUGS (2)
  1. NICODERM CQ [Suspect]
     Active Substance: NICOTINE
     Indication: DRUG WITHDRAWAL MAINTENANCE THERAPY
     Dosage: 21 MG, UNK
  2. NICORETTE WHITE ICE MINT [Suspect]
     Active Substance: NICOTINE
     Indication: DRUG WITHDRAWAL MAINTENANCE THERAPY
     Dosage: 4 MG, UNK (USED THE GUM 1-3 PIECES A DAY)
     Dates: end: 20170512

REACTIONS (12)
  - Feeling jittery [Not Recovered/Not Resolved]
  - Dyspnoea [Recovered/Resolved]
  - Drug withdrawal syndrome [Unknown]
  - Drug ineffective [Unknown]
  - Faeces discoloured [Not Recovered/Not Resolved]
  - Anxiety [Recovered/Resolved]
  - Gastric disorder [Unknown]
  - Dyspepsia [Unknown]
  - Hiccups [Unknown]
  - Panic attack [Unknown]
  - Heart rate increased [Recovered/Resolved]
  - Incorrect dose administered [Unknown]

NARRATIVE: CASE EVENT DATE: 20170618
